FAERS Safety Report 21320760 (Version 3)
Quarter: 2023Q1

REPORT INFORMATION
  Report Type: Other
  Country: GB (occurrence: GB)
  Receive Date: 20220912
  Receipt Date: 20230130
  Transmission Date: 20230417
  Serious: Yes (Other)
  Sender: FDA-Public Use
  Company Number: None

PATIENT
  Sex: Male

DRUGS (15)
  1. GABAPENTIN [Interacting]
     Active Substance: GABAPENTIN
     Indication: Product used for unknown indication
     Dosage: 300 MILLIGRAM, 4 DOSES 3 TIMES A DAY= 3,600MG, OVER 10 YEARS (CAPSULE) (TOOK AWAY 2,700MG A DAY, LEA
     Route: 065
  2. GABAPENTIN [Interacting]
     Active Substance: GABAPENTIN
     Dosage: UNK (DOSE DECREASED)
     Route: 065
  3. ISOSORBIDE MONONITRATE [Interacting]
     Active Substance: ISOSORBIDE MONONITRATE
     Indication: Product used for unknown indication
     Dosage: 80 MG PER DAY, MORNING AND EVENING, OVER 10 YEARS (TABLET UNCOATED).
     Route: 065
  4. ISOSORBIDE MONONITRATE [Interacting]
     Active Substance: ISOSORBIDE MONONITRATE
     Dosage: 20 MILLIGRAM, BID (DOSE REDUCED)
     Route: 065
  5. ATENOLOL [Interacting]
     Active Substance: ATENOLOL
     Indication: Product used for unknown indication
     Dosage: 100 MG PER DAY, 1 A DAY OVER 10 YEARS (TABLET UNCOATED).
     Route: 065
  6. AMLODIPINE [Interacting]
     Active Substance: AMLODIPINE BESYLATE
     Indication: Product used for unknown indication
     Dosage: 10 MG PER DAY, 1 A DAY OVER 10 YEARS (TABLET UNCOATED).
     Route: 065
  7. LISINOPRIL [Interacting]
     Active Substance: LISINOPRIL
     Indication: Product used for unknown indication
     Dosage: 20 MG PER DAY, 1 A DAY OVER 10 YEARS (TABLET UNCOATED)
     Route: 065
  8. ALLOPURINOL [Interacting]
     Active Substance: ALLOPURINOL
     Indication: Product used for unknown indication
     Dosage: 300 MG PER DAY, 1 A DAY OVER 10 YEARS. (TABLET)
     Route: 065
  9. BACLOFEN [Interacting]
     Active Substance: BACLOFEN
     Indication: Product used for unknown indication
     Dosage: 10 MILLIGRAM, 1-4 TIMES A DAY = 40MG, OVER 10 YEARS (TABLET, UNCOATED)
     Route: 065
     Dates: end: 20191111
  10. CLONAZEPAM [Interacting]
     Active Substance: CLONAZEPAM
     Indication: Product used for unknown indication
     Dosage: 0.5 MILLIGRAM,  1-4 TIMES A DAY= 2 MG PER DAY, OVER 10 YEARS (TABLET, UNCOATED)
     Route: 065
     Dates: end: 20191111
  11. TRAMADOL [Interacting]
     Active Substance: TRAMADOL
     Indication: Product used for unknown indication
     Dosage: 50 MILLIGRAM, 1-4 TIMES A DAY = 200MG, OVER 10 YEARS (CAPSULE)
     Route: 065
     Dates: end: 20191111
  12. SERTRALINE [Interacting]
     Active Substance: SERTRALINE HYDROCHLORIDE
     Indication: Product used for unknown indication
     Dosage: 200MG PER DAY, MORNING AND EVENING OVER 10 YEARS (TABLET UNCOATED).
     Route: 065
  13. ASPIRIN [Interacting]
     Active Substance: ASPIRIN
     Indication: Product used for unknown indication
     Dosage: 75 MG PER DAY, 1 A DAY OVER 10 YEARS. TOTAL PER DAY 4,625 MG A DAY/10 YEAR (DISPERSIBLE TABLET).
     Route: 065
  14. ATORVASTATIN [Interacting]
     Active Substance: ATORVASTATIN
     Indication: Product used for unknown indication
     Dosage: 20 MG PER DAY, 1 A DAY OVER 10 YEARS (TABLET UNCOATED).
     Route: 065
  15. NITROGLYCERIN [Concomitant]
     Active Substance: NITROGLYCERIN
     Indication: Product used for unknown indication
     Dosage: UNK, PRN (METERED DOSES, WHEN NEEDED)
     Route: 065

REACTIONS (10)
  - Coordination abnormal [Recovered/Resolved]
  - Abnormal dreams [Recovered/Resolved]
  - Muscle spasms [Recovered/Resolved]
  - Drug interaction [Unknown]
  - Visual impairment [Recovered/Resolved]
  - Agitation postoperative [Recovered/Resolved]
  - Confusion postoperative [Recovered/Resolved]
  - Insomnia [Recovered/Resolved]
  - Headache [Recovered/Resolved]
  - Depressed mood [Unknown]
